FAERS Safety Report 8380819-5 (Version None)
Quarter: 2012Q2

REPORT INFORMATION
  Report Type: 
  Country: None (occurrence: None)
  Receive Date: 20120523
  Receipt Date: 20120518
  Transmission Date: 20120825
  Serious: Yes (Other)
  Sender: FDA-Public Use
  Company Number: CA-PFIZER INC-2012121394

PATIENT

DRUGS (2)
  1. SUTENT [Suspect]
     Dosage: UNK
  2. TEMSIROLIMUS [Suspect]
     Dosage: UNK
     Dates: start: 20090101

REACTIONS (1)
  - OSTEONECROSIS [None]
